FAERS Safety Report 10006823 (Version 1)
Quarter: 2014Q1

REPORT INFORMATION
  Report Type: Spontaneous
  Country: US (occurrence: None)
  Receive Date: 20140311
  Receipt Date: 20140311
  Transmission Date: 20141002
  Serious: Yes (Hospitalization)
  Sender: FDA-Public Use
  Company Number: 2014P1001794

PATIENT
  Age: 79 Year
  Sex: Male

DRUGS (2)
  1. CIPROFLOXACIN [Suspect]
     Indication: PNEUMONIA
  2. DILTIAZEM [Concomitant]

REACTIONS (1)
  - Acute generalised exanthematous pustulosis [None]
